FAERS Safety Report 12043462 (Version 1)
Quarter: 2016Q1

REPORT INFORMATION
  Report Type: Report from Study
  Country: US (occurrence: US)
  Receive Date: 20160208
  Receipt Date: 20160208
  Transmission Date: 20160526
  Serious: No
  Sender: FDA-Public Use
  Company Number: US-ABBVIE-15P-163-1363746-00

PATIENT
  Age: 42 Year
  Sex: Male

DRUGS (3)
  1. HUMIRA [Suspect]
     Active Substance: ADALIMUMAB
     Indication: RHEUMATOID ARTHRITIS
     Route: 065
  2. HUMIRA [Suspect]
     Active Substance: ADALIMUMAB
     Indication: JUVENILE IDIOPATHIC ARTHRITIS
     Route: 058
     Dates: start: 201407, end: 201503
  3. CELEBREX [Concomitant]
     Active Substance: CELECOXIB
     Indication: PRODUCT USED FOR UNKNOWN INDICATION
     Route: 048

REACTIONS (11)
  - Injection site reaction [Recovered/Resolved]
  - Abdominal pain [Not Recovered/Not Resolved]
  - Food intolerance [Unknown]
  - Liver disorder [Unknown]
  - Abdominal discomfort [Not Recovered/Not Resolved]
  - Alanine aminotransferase increased [Unknown]
  - Haematochezia [Not Recovered/Not Resolved]
  - Splenomegaly [Not Recovered/Not Resolved]
  - Diverticulitis [Unknown]
  - Diverticulum [Unknown]
  - Alanine aminotransferase increased [Not Recovered/Not Resolved]

NARRATIVE: CASE EVENT DATE: 20140701
